FAERS Safety Report 7719490-1 (Version None)
Quarter: 2011Q3

REPORT INFORMATION
  Report Type: 
  Country: None (occurrence: None)
  Receive Date: 20110830
  Receipt Date: 20110826
  Transmission Date: 20111222
  Serious: Yes (Hospitalization)
  Sender: FDA-Public Use
  Company Number: US-B.I. PHARMACEUTICALS,INC./RIDGEFIELD-2011-BP-17770BP

PATIENT
  Sex: Female

DRUGS (10)
  1. GLUCOPHAGE [Concomitant]
     Indication: DIABETES MELLITUS
  2. PRADAXA [Suspect]
     Dosage: 300 MG
     Route: 048
  3. ASPIRIN [Concomitant]
     Indication: ROUTINE HEALTH MAINTENANCE
  4. POTASSIUM [Concomitant]
     Indication: ROUTINE HEALTH MAINTENANCE
  5. PRADAXA [Suspect]
     Indication: ATRIAL FIBRILLATION
     Dosage: 300 MG
     Route: 048
     Dates: start: 20110301, end: 20110601
  6. PROCARDIA [Concomitant]
     Indication: ATRIAL FIBRILLATION
  7. ZOLOFT [Concomitant]
     Indication: ANXIETY
  8. XANAX [Concomitant]
     Indication: ANXIETY
  9. LASIX [Concomitant]
     Indication: FLUID RETENTION
  10. METFORMIN HYDROCHLORIDE [Concomitant]
     Indication: DIABETES MELLITUS

REACTIONS (5)
  - BALANCE DISORDER [None]
  - RECTAL HAEMORRHAGE [None]
  - LARGE INTESTINAL HAEMORRHAGE [None]
  - FALL [None]
  - POLYP [None]
